FAERS Safety Report 4906004-4 (Version None)
Quarter: 2006Q1

REPORT INFORMATION
  Report Type: 
  Country: None (occurrence: None)
  Receive Date: 20060206
  Receipt Date: 20060130
  Transmission Date: 20060701
  Serious: Yes (Hospitalization)
  Sender: FDA-Public Use
  Company Number: 06-NIP00001

PATIENT
  Age: 72 Year
  Sex: Male

DRUGS (19)
  1. NIPENT [Suspect]
     Indication: CHRONIC LYMPHOCYTIC LEUKAEMIA
     Dosage: 0.381 MG (8 MG, Q 21 D), INTRAVENOUS
     Route: 042
     Dates: start: 20051215
  2. CYTOXAN [Suspect]
     Indication: CHRONIC LYMPHOCYTIC LEUKAEMIA
     Dosage: 57.1429 MG (1200 MG, Q 21 D), INTRAVENOUS
     Route: 042
     Dates: start: 20051215
  3. RITUXAN [Suspect]
     Indication: CHRONIC LYMPHOCYTIC LEUKAEMIA
     Dosage: 38.0952 MG (800 MG, Q 21  D), INTRAVENOUS
     Route: 042
     Dates: start: 20051222
  4. ATORVASTATIN CALCIUM [Concomitant]
  5. HYDROCHLOROTHIAZIDE [Concomitant]
  6. ACIPHEX (RABEPRAZOLE SODIUM) (RABEPRAZOLE SODIUM) [Concomitant]
  7. K-DUR (POTASSIUM CHLORIDE) (POTASSIUM CHLORIDE) [Concomitant]
  8. UROXATROL [Concomitant]
  9. ASPIRIN [Concomitant]
  10. PLAVIX (CLOPIDOGREL SULFATE) (CLOPIDOGREL SULFATE) [Concomitant]
  11. NORVASC [Concomitant]
  12. ZETIA (EZETIMIBE) (EZETIMIBE) [Concomitant]
  13. DUCOSTAT [Concomitant]
  14. DETRAL LA [Concomitant]
  15. FOLIC ACID (FOLIC ACID) (FOLIC ACID) [Concomitant]
  16. HISTERLIN (HISTERLIN) (HISTERLIN) [Concomitant]
  17. CLARINEX [Concomitant]
  18. CLARITIN-D (PSEUDOEPHEDRINE SULFATE, LORATADINE) (PSEUDOEPHEDRINE SULF [Concomitant]
  19. MOMETASONE (MOMETASONE) (SHAMPOO) (MOMETASONE) [Concomitant]

REACTIONS (4)
  - HYPOCALCAEMIA [None]
  - HYPOKALAEMIA [None]
  - PYREXIA [None]
  - URINARY TRACT INFECTION [None]
